FAERS Safety Report 6545116-9 (Version None)
Quarter: 2010Q1

REPORT INFORMATION
  Report Type: 
  Country: None (occurrence: None)
  Receive Date: 20100121
  Receipt Date: 20100111
  Transmission Date: 20100710
  Serious: Yes (Hospitalization)
  Sender: FDA-Public Use
  Company Number: GXKR2010DK00698

PATIENT
  Sex: Female

DRUGS (2)
  1. METHOTREXATE (NGX) [Suspect]
     Indication: POLYMYALGIA RHEUMATICA
     Route: 065
     Dates: start: 20091110
  2. PREDNISOLONE [Concomitant]
     Route: 065

REACTIONS (1)
  - ATRIAL FIBRILLATION [None]
